FAERS Safety Report 6507912 (Version 6)
Quarter: 2020Q3

REPORT INFORMATION
  Report Type: Report from Study
  Country: US (occurrence: US)
  Receive Date: 20071218
  Receipt Date: 20090220
  Transmission Date: 20201104
  Serious: Yes (Life-Threatening, Other)
  Sender: FDA-Public Use
  Company Number: US-JNJFOC-20071200677

PATIENT
  Age: 0 Year
  Sex: Female
  Weight: 5.5 kg

DRUGS (3)
  1. CISAPRIDE [Suspect]
     Active Substance: CISAPRIDE
     Route: 050
  2. CISAPRIDE [Suspect]
     Active Substance: CISAPRIDE
     Indication: PRODUCT USED FOR UNKNOWN INDICATION
     Route: 050
  3. HEPARIN [Concomitant]
     Active Substance: HEPARIN SODIUM
     Indication: THROMBOSIS PROPHYLAXIS

REACTIONS (1)
  - Electrocardiogram QT prolonged [Recovered/Resolved]

NARRATIVE: CASE EVENT DATE: 20060915
